FAERS Safety Report 20047935 (Version 1)
Quarter: 2021Q4

REPORT INFORMATION
  Report Type: Other
  Country: US (occurrence: None)
  Receive Date: 20211109
  Receipt Date: 20211109
  Transmission Date: 20220304
  Serious: Yes (Hospitalization)
  Sender: FDA-Public Use
  Company Number: US-ROCHE-2946058

PATIENT
  Age: 37 Year
  Sex: Female

DRUGS (12)
  1. OCREVUS [Suspect]
     Active Substance: OCRELIZUMAB
     Indication: Relapsing-remitting multiple sclerosis
     Route: 042
     Dates: start: 201804
  2. OCREVUS [Suspect]
     Active Substance: OCRELIZUMAB
     Dosage: ONGOING
     Route: 042
  3. IBUPROFEN [Concomitant]
     Active Substance: IBUPROFEN
     Dosage: 2 PILL AS NEEDED EVERY 6 TO 8 HOURS    STARTED WHEN SHE WAS 13 YEARS OLD ;ONGOING: YES
     Route: 048
  4. VALTREX [Concomitant]
     Active Substance: VALACYCLOVIR HYDROCHLORIDE
     Dosage: STARTED AT THE AGE OF 2 YEARS OLD             FOR A TOTAL OF 2 DOSES ;ONGOING: YES
     Route: 048
  5. ALPHA LIPOIC ACID [Concomitant]
     Active Substance: .ALPHA.-LIPOIC ACID
     Indication: Neuropathy peripheral
     Dosage: YES
     Route: 048
     Dates: start: 20211021
  6. COVID-19 VACCINE [Concomitant]
     Indication: COVID-19 immunisation
     Dosage: 2 DOSES ONLY ;ONGOING: NO
     Route: 030
     Dates: start: 20210226, end: 20210319
  7. SOLU-MEDROL [Concomitant]
     Active Substance: METHYLPREDNISOLONE SODIUM SUCCINATE
     Dosage: NO
     Route: 042
     Dates: start: 201804
  8. BENADRYL [Concomitant]
     Active Substance: DIPHENHYDRAMINE HYDROCHLORIDE
     Dosage: NO
     Route: 048
     Dates: start: 201804
  9. BENADRYL [Concomitant]
     Active Substance: DIPHENHYDRAMINE HYDROCHLORIDE
     Dosage: STARTED WITH FIRST FULL DOSE OF OCREVUS ;ONGOING: YES
     Route: 042
  10. TYLENOL [Concomitant]
     Active Substance: ACETAMINOPHEN
     Dosage: ONGOING YES
     Route: 048
  11. DECADRON [Concomitant]
     Active Substance: DEXAMETHASONE
     Dosage: STARTED WITH FIRST FULL DOSE OCREVUS ;ONGOING: YES
     Route: 042
  12. ZYRTEC (UNITED STATES) [Concomitant]
     Dosage: STANDARD DOSE 1 PILL 3 DAYS BEFORE OCREVUS AND 3 DAYS AFTER OCREVUS ;ONGOING: YES
     Route: 048
     Dates: start: 20210424

REACTIONS (5)
  - COVID-19 pneumonia [Unknown]
  - Disturbance in attention [Not Recovered/Not Resolved]
  - Neuropathy peripheral [Not Recovered/Not Resolved]
  - Infusion related reaction [Recovered/Resolved]
  - B-lymphocyte count increased [Not Recovered/Not Resolved]

NARRATIVE: CASE EVENT DATE: 20180401
